FAERS Safety Report 6503859-7 (Version None)
Quarter: 2009Q4

REPORT INFORMATION
  Report Type: 
  Country: None (occurrence: None)
  Receive Date: 20091217
  Receipt Date: 20091210
  Transmission Date: 20100525
  Serious: Yes (Other)
  Sender: FDA-Public Use
  Company Number: B0606878A

PATIENT
  Age: 91 Year
  Sex: Female
  Weight: 60 kg

DRUGS (2)
  1. ARIXTRA [Suspect]
     Indication: PHLEBITIS
     Dosage: 10MG PER DAY
     Route: 058
     Dates: start: 20091101, end: 20091101
  2. KARDEGIC [Concomitant]
     Indication: ATRIAL FIBRILLATION

REACTIONS (3)
  - HAEMATOMA [None]
  - INCORRECT DOSE ADMINISTERED [None]
  - OVERDOSE [None]
